FAERS Safety Report 9552852 (Version 1)
Quarter: 2013Q3

REPORT INFORMATION
  Report Type: Spontaneous
  Country: US (occurrence: US)
  Receive Date: 20130925
  Receipt Date: 20130925
  Transmission Date: 20140515
  Serious: No
  Sender: FDA-Public Use
  Company Number: US-PURDUE-USA-2013-0102103

PATIENT
  Age: 59 Year
  Sex: Male

DRUGS (4)
  1. MS CONTIN TABLETS [Suspect]
     Indication: PAIN
     Dosage: 100 MG, UNK
     Route: 048
  2. OXYCODONE HCL IMMEDIATE RELEASE (91-490) [Suspect]
     Indication: PAIN
     Route: 048
  3. FENTANYL /00174602/ [Suspect]
     Indication: PAIN
     Route: 065
  4. METHADONE /00068902/ [Suspect]
     Indication: PAIN
     Route: 065

REACTIONS (4)
  - Drug withdrawal syndrome [Unknown]
  - Chills [Unknown]
  - Diarrhoea [Unknown]
  - Hot flush [Unknown]
